FAERS Safety Report 16034177 (Version 1)
Quarter: 2019Q1

REPORT INFORMATION
  Report Type: Spontaneous
  Country: US (occurrence: US)
  Receive Date: 20190205
  Receipt Date: 20190205
  Transmission Date: 20190418
  Serious: Yes (Hospitalization)
  Sender: FDA-Public Use
  Company Number: None

PATIENT
  Age: 67 Year
  Sex: Female

DRUGS (17)
  1. DOXYCYCLINE. [Concomitant]
     Active Substance: DOXYCYCLINE
  2. NIZORAL TOP SHAMPOO [Concomitant]
  3. ASPIRIN. [Concomitant]
     Active Substance: ASPIRIN
  4. BUSPIRONE [Concomitant]
     Active Substance: BUSPIRONE HYDROCHLORIDE
  5. DILTIAZEM. [Concomitant]
     Active Substance: DILTIAZEM
  6. BETAMETHOSONE TOP OINT [Concomitant]
  7. MYCO LOG II TOP OINT [Concomitant]
  8. TRACLEER [Suspect]
     Active Substance: BOSENTAN
     Indication: PULMONARY ARTERIAL HYPERTENSION
     Route: 048
     Dates: start: 201710
  9. OXYCODONE [Concomitant]
     Active Substance: OXYCODONE
  10. SENNA [Concomitant]
     Active Substance: SENNA LEAF\SENNOSIDES\SENNOSIDES A AND B
  11. MVI [Concomitant]
     Active Substance: VITAMINS
  12. METOCLOPRAMIDE. [Concomitant]
     Active Substance: METOCLOPRAMIDE
  13. SILDENAFIL. [Concomitant]
     Active Substance: SILDENAFIL
  14. DULCOLAX NOS [Concomitant]
     Active Substance: BISACODYL OR DOCUSATE SODIUM
  15. COLACE [Concomitant]
     Active Substance: DOCUSATE SODIUM
  16. PANTOPRAZOLE [Concomitant]
     Active Substance: PANTOPRAZOLE
  17. LIDEX TOP CR [Concomitant]

REACTIONS (3)
  - Faecaloma [None]
  - Small intestinal obstruction [None]
  - Stomal hernia [None]

NARRATIVE: CASE EVENT DATE: 20181226
